FAERS Safety Report 7954401-5 (Version None)
Quarter: 2011Q4

REPORT INFORMATION
  Report Type: 
  Country: None (occurrence: None)
  Receive Date: 20111202
  Receipt Date: 20111124
  Transmission Date: 20120403
  Serious: Yes (Life-Threatening, Hospitalization, Disabling)
  Sender: FDA-Public Use
  Company Number: CA-GLAXOSMITHKLINE-A0951618A

PATIENT
  Sex: Male
  Weight: 95.3 kg

DRUGS (3)
  1. LEVOTHYROXINE SODIUM [Concomitant]
     Indication: HYPOTHYROIDISM
     Dosage: 100MCG PER DAY
     Route: 065
     Dates: start: 20010921
  2. METFORMIN HCL [Concomitant]
     Indication: DIABETES MELLITUS
     Dosage: 500MG THREE TIMES PER DAY
     Route: 065
     Dates: start: 20010101
  3. AVANDIA [Suspect]
     Indication: DIABETES MELLITUS
     Dosage: 4MG SEE DOSAGE TEXT
     Route: 048
     Dates: start: 20050922, end: 20070725

REACTIONS (9)
  - MUSCULOSKELETAL DISORDER [None]
  - CEREBRAL HAEMORRHAGE [None]
  - CEREBROVASCULAR ACCIDENT [None]
  - MUSCULOSKELETAL DISCOMFORT [None]
  - MEMORY IMPAIRMENT [None]
  - SUBDURAL HAEMATOMA [None]
  - SPEECH DISORDER [None]
  - COGNITIVE DISORDER [None]
  - ILL-DEFINED DISORDER [None]
